FAERS Safety Report 7307856-3 (Version None)
Quarter: 2011Q1

REPORT INFORMATION
  Report Type: 
  Country: None (occurrence: None)
  Receive Date: 20110223
  Receipt Date: 20110218
  Transmission Date: 20110831
  Serious: Yes (Death)
  Sender: FDA-Public Use
  Company Number: GB-SANOFI-AVENTIS-2011SA010632

PATIENT
  Age: 71 Year
  Sex: Male

DRUGS (5)
  1. AVASTIN [Suspect]
  2. CAPECITABINE [Suspect]
     Dates: start: 20101208, end: 20101231
  3. OXALIPLATIN [Suspect]
  4. AVASTIN [Suspect]
     Dates: start: 20101208, end: 20101208
  5. OXALIPLATIN [Suspect]
     Dates: start: 20101209, end: 20101209

REACTIONS (1)
  - GASTROINTESTINAL PERFORATION [None]
